FAERS Safety Report 6644199-5 (Version None)
Quarter: 2010Q1

REPORT INFORMATION
  Report Type: 
  Country: None (occurrence: None)
  Receive Date: 20100317
  Receipt Date: 20100304
  Transmission Date: 20100710
  Serious: Yes (Life-Threatening, Other)
  Sender: FDA-Public Use
  Company Number: 1000011855

PATIENT
  Age: 29 Year
  Sex: Female

DRUGS (7)
  1. LEXAPRO [Suspect]
     Indication: BURNOUT SYNDROME
     Dosage: 10 MG (10 MG, 1 IN 1 D), ORAL
     Route: 048
     Dates: start: 20090301, end: 20090701
  2. LEXAPRO [Suspect]
     Indication: BURNOUT SYNDROME
     Dosage: 20 MG (10 MG, 2 IN 1 D), ORAL, 10 MG (10 MG, 1 IN 1 D), ORAL,  2.5 MG (5 MG, 1 IN 2 D), ORAL
     Route: 048
     Dates: start: 20090701, end: 20091113
  3. LEXAPRO [Suspect]
     Indication: BURNOUT SYNDROME
     Dosage: 20 MG (10 MG, 2 IN 1 D), ORAL, 10 MG (10 MG, 1 IN 1 D), ORAL,  2.5 MG (5 MG, 1 IN 2 D), ORAL
     Route: 048
     Dates: start: 20091114, end: 20091215
  4. LEXAPRO [Suspect]
     Indication: BURNOUT SYNDROME
     Dosage: 20 MG (10 MG, 2 IN 1 D), ORAL, 10 MG (10 MG, 1 IN 1 D), ORAL,  2.5 MG (5 MG, 1 IN 2 D), ORAL
     Route: 048
     Dates: start: 20091216, end: 20100106
  5. LEXAPRO [Suspect]
     Indication: BURNOUT SYNDROME
     Dosage: 5 MG (5 MG, 1 IN 1 D), ORAL
     Route: 048
     Dates: start: 20100111, end: 20100127
  6. LEXAPRO [Suspect]
     Dosage: 2 MG (2 MG, 1 IN 1 D), ORAL
     Route: 048
     Dates: start: 20100219
  7. LEXAPRO ORAL SOULTION (ESCITALOPRAM OXALATE) [Concomitant]

REACTIONS (13)
  - ANXIETY [None]
  - DEPRESSION [None]
  - DRUG INEFFECTIVE [None]
  - DRY MOUTH [None]
  - FATIGUE [None]
  - HEADACHE [None]
  - HOMICIDAL IDEATION [None]
  - HYPERHIDROSIS [None]
  - INSOMNIA [None]
  - PANIC ATTACK [None]
  - SELF-INJURIOUS IDEATION [None]
  - SUICIDAL IDEATION [None]
  - TREMOR [None]
